FAERS Safety Report 9493145 (Version 1)
Quarter: 2013Q3

REPORT INFORMATION
  Report Type: Spontaneous
  Country: US (occurrence: US)
  Receive Date: 20130902
  Receipt Date: 20130902
  Transmission Date: 20140515
  Serious: Yes (Death)
  Sender: FDA-Public Use
  Company Number: US-ROCHE-1269098

PATIENT
  Sex: Female

DRUGS (6)
  1. XELODA [Suspect]
     Indication: PANCREATIC CARCINOMA
     Dosage: 1 TAB DAILY FOR ONE WEEK AND 1 WEEK OFF
     Route: 048
  2. LEVOFLOXACIN [Concomitant]
  3. NORCO [Concomitant]
  4. SIMVASTATIN [Concomitant]
  5. CHOLESTYRAMINE [Concomitant]
  6. CREON [Concomitant]

REACTIONS (1)
  - Death [Fatal]
